FAERS Safety Report 7055848-4 (Version None)
Quarter: 2010Q4

REPORT INFORMATION
  Report Type: 
  Country: None (occurrence: None)
  Receive Date: 20101021
  Receipt Date: 20101007
  Transmission Date: 20110411
  Serious: Yes (Other)
  Sender: FDA-Public Use
  Company Number: IE-GENENTECH-308141

PATIENT
  Sex: Male
  Weight: 70.3 kg

DRUGS (9)
  1. MABTHERA [Suspect]
     Indication: LYMPHOMA
     Dosage: 720 MG, UNK
     Route: 042
     Dates: start: 20100822
  2. MABTHERA [Suspect]
     Dosage: 720 MG, Q3W
     Route: 042
     Dates: start: 20101007, end: 20101007
  3. CYCLOPHOSPHAMIDE [Concomitant]
     Indication: LYMPHOMA
     Dosage: UNK
     Route: 042
     Dates: start: 20100822
  4. CYCLOPHOSPHAMIDE [Concomitant]
     Dosage: 1440 MG, Q3W
     Route: 042
     Dates: start: 20101007, end: 20101007
  5. DOXORUBICIN HCL [Concomitant]
     Indication: LYMPHOMA
     Dosage: UNK
     Route: 042
     Dates: start: 20100822
  6. DOXORUBICIN HCL [Concomitant]
     Dosage: 96 MG, Q3W
     Route: 042
     Dates: start: 20101007, end: 20101007
  7. VINCRISTINE [Concomitant]
     Indication: LYMPHOMA
     Dosage: UNK
     Route: 042
     Dates: start: 20100822
  8. VINCRISTINE [Concomitant]
     Dosage: 2 MG, Q3W
     Route: 042
     Dates: start: 20101007, end: 20101007
  9. PREDNISOLONE [Concomitant]
     Indication: LYMPHOMA
     Dosage: UNK
     Dates: start: 20100822

REACTIONS (1)
  - EXTRAVASATION [None]
